FAERS Safety Report 5121937-4 (Version None)
Quarter: 2006Q4

REPORT INFORMATION
  Report Type: 
  Country: None (occurrence: None)
  Receive Date: 20061003
  Receipt Date: 20060926
  Transmission Date: 20070319
  Serious: Yes (Death)
  Sender: FDA-Public Use
  Company Number: E2020-00499-SPO-ES

PATIENT
  Age: 63 Year
  Sex: Female
  Weight: 60 kg

DRUGS (6)
  1. ARICEPT [Suspect]
     Indication: PARKINSON'S DISEASE
     Dosage: 10 MG, 1 IN 1 D, ORAL
     Route: 048
     Dates: start: 20060101, end: 20060807
  2. SEROQUEL [Suspect]
     Indication: PSYCHOTIC DISORDER
     Dosage: 200 MG 2 IN 1 D, ORAL
     Route: 048
     Dates: start: 20060701, end: 20060807
  3. REQUIP [Concomitant]
  4. SINEMET [Concomitant]
  5. KONAKION [Concomitant]
  6. LANTUS [Concomitant]

REACTIONS (5)
  - CONVULSION [None]
  - NEUROLEPTIC MALIGNANT SYNDROME [None]
  - RENAL FAILURE [None]
  - RHABDOMYOLYSIS [None]
  - SHOCK [None]
